FAERS Safety Report 22208409 (Version 2)
Quarter: 2023Q2

REPORT INFORMATION
  Report Type: Spontaneous
  Country: US (occurrence: US)
  Receive Date: 20230413
  Receipt Date: 20230428
  Transmission Date: 20230721
  Serious: Yes (Other)
  Sender: FDA-Public Use
  Company Number: US-TEVA-2023-US-2875017

PATIENT
  Age: 54 Year
  Sex: Female

DRUGS (27)
  1. LORATADINE [Suspect]
     Active Substance: LORATADINE
     Indication: Granuloma skin
     Dosage: 10 MILLIGRAM DAILY; AS NEEDED, RECEIVING MORE THAN 4 YEARS
     Route: 065
     Dates: start: 20180518
  2. CYCLOSPORINE [Suspect]
     Active Substance: CYCLOSPORINE
     Indication: Angiolymphoid hyperplasia with eosinophilia
     Route: 048
  3. CYCLOSPORINE [Suspect]
     Active Substance: CYCLOSPORINE
     Indication: Granuloma skin
  4. HYDROXYCHLOROQUINE [Suspect]
     Active Substance: HYDROXYCHLOROQUINE
     Indication: Granuloma skin
     Dosage: 400 MILLIGRAM DAILY;
     Route: 065
     Dates: start: 20201102, end: 20220602
  5. HYDROXYCHLOROQUINE [Suspect]
     Active Substance: HYDROXYCHLOROQUINE
     Dosage: 200 MILLIGRAM DAILY;
     Route: 065
     Dates: start: 20220602, end: 20221021
  6. GABAPENTIN [Suspect]
     Active Substance: GABAPENTIN
     Indication: Granuloma skin
     Dosage: 300 MILLIGRAM DAILY;
     Route: 065
     Dates: start: 20220331, end: 20221021
  7. MINOCYCLINE [Suspect]
     Active Substance: MINOCYCLINE HYDROCHLORIDE
     Indication: Granuloma skin
     Dosage: 200 MILLIGRAM DAILY;
     Route: 065
     Dates: start: 20180905, end: 20181017
  8. CLOBETASOL [Suspect]
     Active Substance: CLOBETASOL
     Indication: Angiolymphoid hyperplasia with eosinophilia
     Dosage: .05 PERCENT DAILY; AS NEEDED
     Route: 065
     Dates: start: 20180518, end: 20181205
  9. CLOBETASOL [Suspect]
     Active Substance: CLOBETASOL
     Indication: Granuloma skin
     Dosage: FOAM: 2-3 TIMES WEEKLY
     Route: 065
     Dates: start: 20181205
  10. DOXEPIN [Suspect]
     Active Substance: DOXEPIN
     Indication: Granuloma skin
     Dosage: 10 MG/ML
     Route: 065
     Dates: start: 20210414, end: 20210813
  11. MUPIROCIN [Suspect]
     Active Substance: MUPIROCIN
     Indication: Granuloma skin
     Dosage: 4 PERCENT DAILY;
     Route: 065
     Dates: start: 20191122, end: 20200217
  12. MUPIROCIN [Suspect]
     Active Substance: MUPIROCIN
     Dosage: 4 PERCENT DAILY;
     Route: 065
     Dates: start: 20200612, end: 20210121
  13. TACROLIMUS [Suspect]
     Active Substance: TACROLIMUS
     Indication: Granuloma skin
     Dosage: .2 PERCENT DAILY;
     Route: 065
     Dates: start: 20210108, end: 20210820
  14. TACROLIMUS [Suspect]
     Active Substance: TACROLIMUS
     Dosage: .2 PERCENT DAILY;
     Route: 065
     Dates: start: 20220321, end: 20220504
  15. DAPSONE [Suspect]
     Active Substance: DAPSONE
     Indication: Granuloma skin
     Dosage: 25 MILLIGRAM DAILY;
     Route: 048
     Dates: start: 20181010, end: 20181205
  16. DAPSONE [Suspect]
     Active Substance: DAPSONE
     Dosage: 100 MILLIGRAM DAILY;
     Route: 048
     Dates: start: 20181205, end: 20191122
  17. DAPSONE [Suspect]
     Active Substance: DAPSONE
     Dosage: 150 MILLIGRAM DAILY;
     Route: 048
     Dates: start: 20191122, end: 20200918
  18. DAPSONE [Suspect]
     Active Substance: DAPSONE
     Dosage: 100 MILLIGRAM DAILY;
     Route: 048
     Dates: start: 20200918, end: 20201120
  19. DAPSONE [Suspect]
     Active Substance: DAPSONE
     Dosage: 50 MILLIGRAM DAILY;
     Route: 048
     Dates: start: 20201120, end: 20210716
  20. DAPSONE [Suspect]
     Active Substance: DAPSONE
     Dosage: 100 MILLIGRAM DAILY;
     Route: 048
     Dates: start: 20210716, end: 20220331
  21. DAPSONE [Suspect]
     Active Substance: DAPSONE
     Dosage: 150 MILLIGRAM DAILY;
     Route: 048
     Dates: start: 20220331, end: 20220602
  22. KENALOG [Suspect]
     Active Substance: TRIAMCINOLONE ACETONIDE
     Indication: Granuloma skin
     Dosage: 40 MG/ML EVERY 6-12 WK
     Route: 026
     Dates: start: 20181205, end: 20210414
  23. METHOTREXATE [Concomitant]
     Active Substance: METHOTREXATE
     Indication: Angiolymphoid hyperplasia with eosinophilia
     Route: 026
  24. METHOTREXATE [Concomitant]
     Active Substance: METHOTREXATE
     Route: 048
     Dates: start: 20171213, end: 20180426
  25. METHOTREXATE [Concomitant]
     Active Substance: METHOTREXATE
     Route: 048
     Dates: start: 20180518, end: 20190415
  26. METHOTREXATE [Concomitant]
     Active Substance: METHOTREXATE
     Route: 048
     Dates: start: 20190415, end: 20190523
  27. METHOTREXATE [Concomitant]
     Active Substance: METHOTREXATE
     Dosage: RECEIVING MORE THAN 3 YEARS
     Route: 048
     Dates: start: 20190523

REACTIONS (3)
  - Gastrointestinal disorder [Unknown]
  - Methaemoglobinaemia [Unknown]
  - Drug ineffective [Unknown]
